FAERS Safety Report 21652198 (Version 1)
Quarter: 2022Q4

REPORT INFORMATION
  Report Type: Spontaneous
  Country: US (occurrence: None)
  Receive Date: 20221125
  Receipt Date: 20221125
  Transmission Date: 20230112
  Serious: Yes (unspecified)
  Sender: FDA-Public Use
  Company Number: None

PATIENT
  Age: 67 Year
  Sex: Male
  Weight: 91 kg

DRUGS (1)
  1. CEFTRIAXONE [Suspect]
     Active Substance: CEFTRIAXONE
     Indication: Bacterial infection
     Dosage: FREQUENCY : DAILY;?
     Route: 040
     Dates: start: 20221121, end: 20221121

REACTIONS (3)
  - Eye pruritus [None]
  - Throat irritation [None]
  - Periorbital swelling [None]

NARRATIVE: CASE EVENT DATE: 20221121
